FAERS Safety Report 10402063 (Version 1)
Quarter: 2014Q3

REPORT INFORMATION
  Report Type: Spontaneous
  Country: US (occurrence: None)
  Receive Date: 20140815
  Receipt Date: 20140815
  Transmission Date: 20150326
  Serious: Yes (Hospitalization)
  Sender: FDA-Public Use
  Company Number: 20110518VANCO2022

PATIENT
  Age: 73 Year
  Sex: Female

DRUGS (1)
  1. VANCOCIN [Suspect]
     Active Substance: VANCOMYCIN HYDROCHLORIDE
     Indication: INFECTION
     Route: 048
     Dates: start: 20110429, end: 20110505

REACTIONS (9)
  - Diarrhoea [None]
  - Blood potassium decreased [None]
  - Nausea [None]
  - Abdominal discomfort [None]
  - Trismus [None]
  - Dysgeusia [None]
  - Malaise [None]
  - Dehydration [None]
  - Product odour abnormal [None]

NARRATIVE: CASE EVENT DATE: 201104
